FAERS Safety Report 7466240-2 (Version None)
Quarter: 2011Q2

REPORT INFORMATION
  Report Type: 
  Country: None (occurrence: None)
  Receive Date: 20110509
  Receipt Date: 20100709
  Transmission Date: 20111010
  Serious: No
  Sender: FDA-Public Use
  Company Number: US-ALEXION-A201000806

PATIENT
  Sex: Female

DRUGS (7)
  1. MULTI-VITAMINS [Concomitant]
     Dosage: UNK
     Route: 048
  2. FOLIC ACID [Concomitant]
     Dosage: 1 MG, QD
     Route: 048
  3. VITAMIN B12                        /00056201/ [Concomitant]
     Dosage: 1000 UG, QMONTH
  4. XANAX [Concomitant]
     Dosage: UNK
     Route: 048
  5. SOLIRIS [Suspect]
     Indication: PAROXYSMAL NOCTURNAL HAEMOGLOBINURIA
     Dosage: 900 MG, Q2W
     Route: 042
  6. SOLIRIS [Suspect]
     Dosage: 1200 MG, Q2W
     Route: 042
  7. CELEXA [Concomitant]
     Dosage: 40 MG, QD
     Route: 048

REACTIONS (1)
  - FATIGUE [None]
